FAERS Safety Report 18730294 (Version 1)
Quarter: 2021Q1

REPORT INFORMATION
  Report Type: Spontaneous
  Country: US (occurrence: US)
  Receive Date: 20210112
  Receipt Date: 20210112
  Transmission Date: 20210419
  Serious: Yes (Disabling, Other)
  Sender: FDA-Public Use
  Company Number: None

PATIENT
  Age: 38 Year
  Sex: Female
  Weight: 90 kg

DRUGS (1)
  1. LUPRON [Suspect]
     Active Substance: LEUPROLIDE ACETATE
     Indication: LUPUS NEPHRITIS
     Dates: start: 20090101, end: 20120101

REACTIONS (7)
  - Diplopia [None]
  - Blood follicle stimulating hormone decreased [None]
  - Bone density abnormal [None]
  - Visual impairment [None]
  - Weight increased [None]
  - Infertility [None]
  - Depression [None]

NARRATIVE: CASE EVENT DATE: 20140101
